FAERS Safety Report 8014651-9 (Version None)
Quarter: 2011Q4

REPORT INFORMATION
  Report Type: 
  Country: None (occurrence: None)
  Receive Date: 20111229
  Receipt Date: 20111220
  Transmission Date: 20120403
  Serious: Yes (Hospitalization, Disabling, Other)
  Sender: FDA-Public Use
  Company Number: US-ASTRAZENECA-2010SE44190

PATIENT
  Age: 46 Year
  Sex: Female
  Weight: 68 kg

DRUGS (19)
  1. SOMA [Concomitant]
     Indication: PAIN
  2. SEROQUEL [Suspect]
     Indication: POST-TRAUMATIC STRESS DISORDER
     Route: 048
  3. SEROQUEL [Suspect]
     Route: 048
  4. SEROQUEL [Suspect]
     Route: 048
     Dates: start: 20080101
  5. SOMA [Concomitant]
     Indication: DEPRESSION
  6. SEROQUEL [Suspect]
     Route: 048
  7. SEROQUEL [Suspect]
     Route: 048
  8. SEROQUEL [Suspect]
     Route: 048
     Dates: start: 20080101
  9. SEROQUEL [Suspect]
     Indication: PSYCHOTIC DISORDER
     Route: 048
  10. SEROQUEL [Suspect]
     Indication: BIPOLAR DISORDER
     Route: 048
  11. SEROQUEL [Suspect]
     Route: 048
  12. SEROQUEL [Suspect]
     Route: 048
  13. SEROQUEL [Suspect]
     Route: 048
     Dates: start: 20080101
  14. ULTRM [Concomitant]
     Indication: PAIN
  15. PROZAC [Concomitant]
     Indication: DEPRESSION
  16. SEROQUEL [Suspect]
     Route: 048
     Dates: start: 20080101
  17. SEROQUEL [Suspect]
     Indication: ANXIETY
     Route: 048
  18. SEROQUEL [Suspect]
     Route: 048
     Dates: start: 20080101
  19. SEROQUEL [Suspect]
     Indication: MAJOR DEPRESSION
     Route: 048

REACTIONS (9)
  - INSOMNIA [None]
  - NIGHTMARE [None]
  - DRUG DOSE OMISSION [None]
  - MUSCLE INJURY [None]
  - LIMB INJURY [None]
  - ACCIDENT [None]
  - POLYARTHRITIS [None]
  - ARTHRALGIA [None]
  - DRUG WITHDRAWAL SYNDROME [None]
